FAERS Safety Report 19425249 (Version 2)
Quarter: 2021Q2

REPORT INFORMATION
  Report Type: Other
  Country: JP (occurrence: JP)
  Receive Date: 20210617
  Receipt Date: 20210618
  Transmission Date: 20210717
  Serious: Yes (Other)
  Sender: FDA-Public Use
  Company Number: JP-ROCHE-2850698

PATIENT
  Age: 67 Year
  Sex: Male
  Weight: 78 kg

DRUGS (1)
  1. AVASTIN [Suspect]
     Active Substance: BEVACIZUMAB
     Indication: RECTAL CANCER
     Route: 041

REACTIONS (2)
  - Focal peritonitis [Unknown]
  - Gastrointestinal stoma complication [Unknown]
